FAERS Safety Report 7019520-9 (Version None)
Quarter: 2010Q3

REPORT INFORMATION
  Report Type: 
  Country: None (occurrence: None)
  Receive Date: 20100923
  Receipt Date: 20100911
  Transmission Date: 20110219
  Serious: Yes (Hospitalization, Other)
  Sender: FDA-Public Use
  Company Number: OU-10-025

PATIENT
  Age: 54 Year
  Sex: Female

DRUGS (1)
  1. PIPERACILLIN AND TAZOBACTAM [Suspect]
     Indication: URINARY TRACT INFECTION

REACTIONS (19)
  - BACTERAEMIA [None]
  - BLOOD LACTIC ACID INCREASED [None]
  - CHEST PAIN [None]
  - CHILLS [None]
  - DRUG HYPERSENSITIVITY [None]
  - DYSGEUSIA [None]
  - EXERCISE TOLERANCE DECREASED [None]
  - HYPOAESTHESIA ORAL [None]
  - LEUKOCYTOSIS [None]
  - LIP SWELLING [None]
  - LUNG CONSOLIDATION [None]
  - PLEURAL EFFUSION [None]
  - PULMONARY EOSINOPHILIA [None]
  - PYREXIA [None]
  - RASH MACULO-PAPULAR [None]
  - RASH PRURITIC [None]
  - RESPIRATORY DISTRESS [None]
  - SKIN TEST POSITIVE [None]
  - SWOLLEN TONGUE [None]
